FAERS Safety Report 5302934-2 (Version None)
Quarter: 2007Q2

REPORT INFORMATION
  Report Type: 
  Country: None (occurrence: None)
  Receive Date: 20070417
  Receipt Date: 20070417
  Transmission Date: 20071010
  Serious: No
  Sender: FDA-Public Use
  Company Number: None

PATIENT
  Age: 28 Year
  Sex: Female
  Weight: 82.5547 kg

DRUGS (1)
  1. CELEBREX [Suspect]
     Indication: WRIST SURGERY
     Dates: start: 20000601, end: 20010801

REACTIONS (6)
  - ARTHRALGIA [None]
  - CONTRAINDICATION TO MEDICAL TREATMENT [None]
  - DRUG HYPERSENSITIVITY [None]
  - GAIT DISTURBANCE [None]
  - PSORIASIS [None]
  - WEIGHT INCREASED [None]
